FAERS Safety Report 6677560-3 (Version None)
Quarter: 2010Q2

REPORT INFORMATION
  Report Type: 
  Country: None (occurrence: None)
  Receive Date: 20100412
  Receipt Date: 20100212
  Transmission Date: 20101027
  Serious: No
  Sender: FDA-Public Use
  Company Number: US-ALEXION-A201000171

PATIENT
  Sex: Male
  Weight: 90.703 kg

DRUGS (9)
  1. SOLIRIS [Suspect]
     Indication: PAROXYSMAL NOCTURNAL HAEMOGLOBINURIA
     Dosage: 600 MG, QWKX4
     Route: 042
     Dates: start: 20100125, end: 20100216
  2. SOLIRIS [Suspect]
     Dosage: 900 MG, UNK
     Route: 042
     Dates: start: 20100223
  3. FLOMAX [Concomitant]
     Dosage: 0.4 MG, QD
     Route: 048
  4. LISINOPRIL [Concomitant]
     Indication: BLOOD PRESSURE MANAGEMENT
     Dosage: 5 MG, QD
     Route: 048
  5. GLIPIZIDE [Concomitant]
     Indication: DIABETES MELLITUS
     Dosage: 5 MG, QD
     Route: 048
  6. ALLOPURINOL [Concomitant]
     Indication: BLOOD URIC ACID INCREASED
     Dosage: 100 MG, QD
     Route: 048
  7. CYCLOSPORINE [Concomitant]
     Dosage: 150 MG, BID
     Route: 048
  8. OMEGA-3 FATTY ACIDS [Concomitant]
     Dosage: 2 BID
     Route: 048
  9. ANTIBIOTICS [Concomitant]
     Indication: URAEMIC NEUROPATHY

REACTIONS (2)
  - DECREASED APPETITE [None]
  - FOOD CRAVING [None]
